FAERS Safety Report 23861212 (Version 1)
Quarter: 2024Q2

REPORT INFORMATION
  Report Type: Report from Study
  Country: US (occurrence: US)
  Receive Date: 20240516
  Receipt Date: 20240516
  Transmission Date: 20240716
  Serious: Yes (Other)
  Sender: FDA-Public Use
  Company Number: US-ABBVIE-5760084

PATIENT
  Sex: Female

DRUGS (1)
  1. RINVOQ [Suspect]
     Active Substance: UPADACITINIB
     Indication: Rheumatoid arthritis
     Route: 048
     Dates: start: 20220203

REACTIONS (8)
  - Proctalgia [Unknown]
  - Fungal infection [Recovering/Resolving]
  - Back pain [Unknown]
  - Cough [Recovering/Resolving]
  - Hypersensitivity [Recovering/Resolving]
  - Sinus disorder [Unknown]
  - Pruritus [Recovering/Resolving]
  - Psoriasis [Unknown]

NARRATIVE: CASE EVENT DATE: 20230101
